FAERS Safety Report 7229465-7 (Version None)
Quarter: 2011Q1

REPORT INFORMATION
  Report Type: 
  Country: None (occurrence: None)
  Receive Date: 20110117
  Receipt Date: 20110110
  Transmission Date: 20110831
  Serious: Yes (Hospitalization, Other)
  Sender: FDA-Public Use
  Company Number: PT-MEDIMMUNE-MEDI-0012084

PATIENT
  Sex: Male

DRUGS (3)
  1. SYNAGIS [Suspect]
     Route: 030
     Dates: start: 20101201, end: 20101201
  2. IRON [Concomitant]
     Route: 048
     Dates: start: 20101031
  3. ERGOCALCIFEROL [Concomitant]
     Dates: start: 20101031

REACTIONS (3)
  - BRADYCARDIA [None]
  - ANAPHYLACTIC REACTION [None]
  - CYANOSIS [None]
